FAERS Safety Report 20420927 (Version 1)
Quarter: 2022Q1

REPORT INFORMATION
  Report Type: Spontaneous
  Country: FR (occurrence: FR)
  Receive Date: 20220203
  Receipt Date: 20220203
  Transmission Date: 20220424
  Serious: Yes (Hospitalization)
  Sender: FDA-Public Use
  Company Number: None

PATIENT
  Age: 91 Year
  Sex: Female
  Weight: 57.8 kg

DRUGS (8)
  1. CANDESARTAN [Suspect]
     Active Substance: CANDESARTAN
     Indication: Hypertension
     Dosage: 16 MG; THERAPY START DATE: ASKU; CANDESARTAN CILEXETIL
     Route: 048
     Dates: end: 20211213
  2. CLARITHROMYCIN [Suspect]
     Active Substance: CLARITHROMYCIN
     Indication: Pneumonia
     Route: 048
     Dates: start: 20211210, end: 20211213
  3. HYDROCHLOROTHIAZIDE [Suspect]
     Active Substance: HYDROCHLOROTHIAZIDE
     Indication: Hypertension
     Dosage: 12.5 MG; THERAPY START DATE: ASKU
     Route: 048
     Dates: end: 20211213
  4. PRISTINAMYCIN [Suspect]
     Active Substance: PRISTINAMYCIN
     Indication: Pneumonia
     Dosage: 6 DOSAGE FORMS DAILY; PYOSTACINE 500 MG, SCORED FILM-COATED TABLET, 6 DF,2 TABLETS 3/DAY
     Route: 048
     Dates: start: 20211207, end: 20211210
  5. ROSUVASTATIN [Concomitant]
     Active Substance: ROSUVASTATIN
     Dosage: 10 MG; THERAPY START DATE: ASKU
     Route: 048
  6. KARDEGIC [Concomitant]
     Active Substance: ASPIRIN DL-LYSINE
     Dosage: 75 MG; THERAPY START DATE: ASKU; KARDEGIC 75 MG, POWDER FOR ORAL SOLUTION IN SACHET-DOSE
     Route: 048
  7. SINGULAIR [Concomitant]
     Active Substance: MONTELUKAST SODIUM
     Dosage: 10 MG; THERAPY START DATE: ASKU; SINGULAIR 10 MG FILM-COATED TABLETS
     Route: 048
  8. SERETIDE [Concomitant]
     Active Substance: FLUTICASONE PROPIONATE\SALMETEROL XINAFOATE
     Dosage: 100 MCG; THERAPY START DATE: ASKU
     Route: 055

REACTIONS (1)
  - Hyponatraemia [Recovered/Resolved]

NARRATIVE: CASE EVENT DATE: 20211210
